FAERS Safety Report 8605562-6 (Version None)
Quarter: 2012Q3

REPORT INFORMATION
  Report Type: 
  Country: None (occurrence: None)
  Receive Date: 20120807
  Receipt Date: 20120724
  Transmission Date: 20120928
  Serious: Yes (Other)
  Sender: FDA-Public Use
  Company Number: HRA-CDB20120216

PATIENT
  Sex: Female

DRUGS (1)
  1. ELLAONE 30 MG COMPRIME (ELLAONE) (ULIPRISTAL ACETATE) [Suspect]
     Indication: POST COITAL CONTRACEPTION
     Dosage: 30 MG (30 MG, 1 IN 1 D), ORAL
     Route: 048
     Dates: start: 20120601, end: 20120601

REACTIONS (3)
  - ECTOPIC PREGNANCY [None]
  - TREATMENT FAILURE [None]
  - MATERNAL EXPOSURE DURING PREGNANCY [None]
